FAERS Safety Report 22389441 (Version 2)
Quarter: 2023Q2

REPORT INFORMATION
  Report Type: Spontaneous
  Country: IT (occurrence: IT)
  Receive Date: 20230531
  Receipt Date: 20230612
  Transmission Date: 20230722
  Serious: Yes (Life-Threatening, Hospitalization, Congenital Anomaly, Other)
  Sender: FDA-Public Use
  Company Number: IT-PFIZER INC-039-1343-M0200001

PATIENT
  Age: 24 Week
  Sex: Male
  Weight: 3.45 kg

DRUGS (10)
  1. VIRACEPT [Suspect]
     Active Substance: NELFINAVIR MESYLATE
     Indication: HIV infection
     Dosage: COURSE NUMBER: 1 (TRIMESTER OF EARLIEST EXPOSURE: SECOND; GEST. WEEK BEGAN [1]: 24)
     Route: 064
  2. RETROVIR [Suspect]
     Active Substance: ZIDOVUDINE
     Indication: HIV infection
     Dosage: UNK
     Route: 064
     Dates: start: 20000112, end: 20000217
  3. RETROVIR [Suspect]
     Active Substance: ZIDOVUDINE
     Dosage: COURSE NUMBER: 1 (TRIMESTER OF EARLIEST EXPOSURE: FIRST; GEST. WEEK BEGAN [1]: 0)
     Route: 064
  4. SUSTIVA [Suspect]
     Active Substance: EFAVIRENZ
     Indication: HIV infection
     Dosage: 600 MG
     Route: 064
     Dates: start: 20000112, end: 20000217
  5. SUSTIVA [Suspect]
     Active Substance: EFAVIRENZ
     Dosage: COURSE NUMBER 1, 600; TRIMESTER OF EARLIEST EXPOSURE: FIRST (GEST. WEEK BEGAN [1]: 0)
     Route: 064
  6. ZERIT [Suspect]
     Active Substance: STAVUDINE
     Indication: HIV infection
     Dosage: COURSE NUMBER: 1 (TRIMESTER OF EARLIEST EXPOSURE: FIRST; GEST. WEEK BEGAN [1]: 0)
     Route: 064
  7. EPIVIR [Suspect]
     Active Substance: LAMIVUDINE
     Indication: HIV infection
     Dosage: UNK
     Route: 064
     Dates: start: 20000112, end: 20000217
  8. EPIVIR [Suspect]
     Active Substance: LAMIVUDINE
     Dosage: COURSE NUMBER 1, (TRIMESTER OF EARLIEST EXPOSURE SECOND, GEST. WEEK BEGAN [1] 24)
     Route: 064
  9. FOLIC ACID [Concomitant]
     Active Substance: FOLIC ACID
     Dosage: UNK
     Route: 065
  10. VITAMIN B COMPLEX [Concomitant]
     Active Substance: CYANOCOBALAMIN\DEXPANTHENOL\NIACINAMIDE\PYRIDOXINE HYDROCHLORIDE\RIBOFLAVIN 5^-PHOSPHATE SODIUM\THIA
     Dosage: UNK
     Route: 065

REACTIONS (4)
  - Maternal exposure during pregnancy [Unknown]
  - Meningomyelocele [Recovered/Resolved with Sequelae]
  - Hydrocephalus [Recovered/Resolved with Sequelae]
  - HIV test positive [Unknown]
